FAERS Safety Report 19488465 (Version 2)
Quarter: 2021Q3

REPORT INFORMATION
  Report Type: Spontaneous
  Country: TH (occurrence: TH)
  Receive Date: 20210702
  Receipt Date: 20210708
  Transmission Date: 20211014
  Serious: Yes (Life-Threatening, Other)
  Sender: FDA-Public Use
  Company Number: NVSC2021TH147872

PATIENT
  Age: 58 Year
  Sex: Female

DRUGS (2)
  1. LETROZOLE. [Suspect]
     Active Substance: LETROZOLE
     Indication: INVASIVE DUCTAL BREAST CARCINOMA
     Dosage: UNK
     Route: 065
     Dates: start: 20190212, end: 202007
  2. PALBOCICLIB [Concomitant]
     Active Substance: PALBOCICLIB
     Indication: INVASIVE BREAST CARCINOMA
     Dosage: UNK
     Route: 065
     Dates: start: 20190212, end: 202007

REACTIONS (10)
  - Breast mass [Unknown]
  - Carbohydrate antigen 15-3 increased [Unknown]
  - Invasive ductal breast carcinoma [Unknown]
  - Lung opacity [Unknown]
  - Neutropenia [Unknown]
  - Cytogenetic analysis abnormal [Unknown]
  - Therapy partial responder [Unknown]
  - Dyspnoea [Unknown]
  - Lymphangiosis carcinomatosa [Unknown]
  - Malignant neoplasm progression [Unknown]

NARRATIVE: CASE EVENT DATE: 20200805
